FAERS Safety Report 13879831 (Version 1)
Quarter: 2017Q3

REPORT INFORMATION
  Report Type: Spontaneous
  Country: US (occurrence: US)
  Receive Date: 20170814
  Receipt Date: 20170814
  Transmission Date: 20171127
  Serious: Yes (Disabling)
  Sender: FDA-Public Use
  Company Number: None

PATIENT
  Sex: Female
  Weight: 63 kg

DRUGS (8)
  1. MIRTAZAPINE. [Concomitant]
     Active Substance: MIRTAZAPINE
  2. AZITHROMYCIN ANHYDROUS. [Suspect]
     Active Substance: AZITHROMYCIN ANHYDROUS
     Indication: EAR INFECTION
     Dosage: ?          QUANTITY:8 CAPSULE(S); DAILY ORAL?
     Route: 048
     Dates: start: 20170429, end: 20170505
  3. AZITHROMYCIN ANHYDROUS. [Suspect]
     Active Substance: AZITHROMYCIN ANHYDROUS
     Indication: OROPHARYNGEAL PAIN
     Dosage: ?          QUANTITY:8 CAPSULE(S); DAILY ORAL?
     Route: 048
     Dates: start: 20170429, end: 20170505
  4. LEVOTHYROXINE. [Concomitant]
     Active Substance: LEVOTHYROXINE
  5. LOSARTAN. [Concomitant]
     Active Substance: LOSARTAN
  6. AZITHROMYCIN ANHYDROUS. [Suspect]
     Active Substance: AZITHROMYCIN ANHYDROUS
     Indication: UPPER RESPIRATORY TRACT INFECTION
     Dosage: ?          QUANTITY:8 CAPSULE(S); DAILY ORAL?
     Route: 048
     Dates: start: 20170429, end: 20170505
  7. BUPROPION. [Concomitant]
     Active Substance: BUPROPION
  8. LIOTHYRONINE [Concomitant]
     Active Substance: LIOTHYRONINE

REACTIONS (4)
  - Hypoacusis [None]
  - Feeling abnormal [None]
  - Ageusia [None]
  - Tinnitus [None]

NARRATIVE: CASE EVENT DATE: 20170429
